FAERS Safety Report 11551937 (Version 1)
Quarter: 2015Q3

REPORT INFORMATION
  Report Type: Spontaneous
  Country: US (occurrence: US)
  Receive Date: 20150903
  Receipt Date: 20150903
  Transmission Date: 20151125
  Serious: No
  Sender: FDA-Public Use
  Company Number: US-ELI_LILLY_AND_COMPANY-US201005006854

PATIENT
  Sex: Male

DRUGS (8)
  1. HUMALOG [Suspect]
     Active Substance: INSULIN LISPRO
     Indication: TYPE 2 DIABETES MELLITUS
     Dosage: 14 U, EACH MORNING
     Dates: start: 2008
  2. AVASTIN [Concomitant]
     Active Substance: BEVACIZUMAB
     Indication: VISUAL IMPAIRMENT
  3. LANTUS [Concomitant]
     Active Substance: INSULIN GLARGINE
     Dosage: 56 UNK, EACH EVENING
  4. HUMALOG [Suspect]
     Active Substance: INSULIN LISPRO
     Dosage: 14 U, EACH EVENING
     Dates: start: 2008
  5. HUMALOG [Suspect]
     Active Substance: INSULIN LISPRO
     Dosage: UNK, UNK
     Dates: start: 2008
  6. HUMALOG [Suspect]
     Active Substance: INSULIN LISPRO
     Dosage: 14U, 14U, 8U
     Route: 065
     Dates: start: 2008
  7. SYMLIN [Concomitant]
     Active Substance: PRAMLINTIDE ACETATE
     Dosage: 30 U, 3/D
     Dates: start: 2008
  8. CORTICOSTEROIDS [Concomitant]
     Active Substance: CORTICOSTEROID NOS
     Indication: VISUAL IMPAIRMENT

REACTIONS (6)
  - Cataract [Unknown]
  - Incorrect dose administered [Unknown]
  - Diabetic retinopathy [Not Recovered/Not Resolved]
  - Visual acuity reduced [Unknown]
  - Injection site haemorrhage [Recovered/Resolved]
  - Neuropathy peripheral [Unknown]

NARRATIVE: CASE EVENT DATE: 2009
